FAERS Safety Report 5788521-0 (Version None)
Quarter: 2008Q2

REPORT INFORMATION
  Report Type: 
  Country: None (occurrence: None)
  Receive Date: 20080625
  Receipt Date: 20080625
  Transmission Date: 20081010
  Serious: Yes (Other)
  Sender: FDA-Public Use
  Company Number: None

PATIENT
  Age: 60 Year
  Sex: Female
  Weight: 52.1637 kg

DRUGS (1)
  1. ISOVUE-300 [Suspect]
     Indication: ABDOMINAL PAIN LOWER
     Dosage: 75ML X 1 DOSE 040
     Dates: start: 20080623

REACTIONS (5)
  - ASTHENIA [None]
  - FLUSHING [None]
  - PALLOR [None]
  - PRURITUS [None]
  - URTICARIA [None]
